FAERS Safety Report 8078109-3 (Version None)
Quarter: 2012Q1

REPORT INFORMATION
  Report Type: 
  Country: None (occurrence: None)
  Receive Date: 20120127
  Receipt Date: 20110331
  Transmission Date: 20120608
  Serious: No
  Sender: FDA-Public Use
  Company Number: US-ABBOTT-10P-163-0686750-00

PATIENT
  Sex: Female
  Weight: 116.68 kg

DRUGS (1)
  1. HUMIRA [Suspect]
     Indication: PSORIASIS
     Route: 058
     Dates: start: 20101115

REACTIONS (16)
  - PYREXIA [None]
  - GINGIVITIS [None]
  - DIABETES MELLITUS [None]
  - TOOTHACHE [None]
  - NASOPHARYNGITIS [None]
  - EPISTAXIS [None]
  - OPEN WOUND [None]
  - PAIN [None]
  - STAPHYLOCOCCAL INFECTION [None]
  - RHINORRHOEA [None]
  - INSOMNIA [None]
  - DEPRESSION [None]
  - NASAL ODOUR [None]
  - TOOTH DISORDER [None]
  - INFLAMMATION [None]
  - NASAL CONGESTION [None]
